FAERS Safety Report 7806711-X (Version None)
Quarter: 2011Q4

REPORT INFORMATION
  Report Type: 
  Country: None (occurrence: None)
  Receive Date: 20111011
  Receipt Date: 20110930
  Transmission Date: 20120403
  Serious: Yes (Hospitalization)
  Sender: FDA-Public Use
  Company Number: US-JNJFOC-20110810849

PATIENT
  Sex: Female

DRUGS (8)
  1. FISH OIL [Concomitant]
  2. MERCAPTOPURINE [Concomitant]
  3. MULTI-VITAMINS [Concomitant]
  4. HUMIRA [Concomitant]
     Dates: start: 20100322
  5. PREDNISONE [Concomitant]
  6. CIMZIA [Concomitant]
  7. METHOTREXATE [Concomitant]
  8. REMICADE [Suspect]
     Indication: INFLAMMATORY BOWEL DISEASE
     Route: 042
     Dates: start: 20041004, end: 20050603

REACTIONS (2)
  - SUPERIOR MESENTERIC ARTERY SYNDROME [None]
  - CROHN'S DISEASE [None]
